FAERS Safety Report 22650492 (Version 1)
Quarter: 2023Q2

REPORT INFORMATION
  Report Type: Spontaneous
  Country: US (occurrence: None)
  Receive Date: 20230627
  Receipt Date: 20230627
  Transmission Date: 20230722
  Serious: Yes (Death)
  Sender: FDA-Public Use
  Company Number: None

PATIENT
  Age: 61 Year
  Sex: Female
  Weight: 101 kg

DRUGS (4)
  1. CEFTRIAXONE [Suspect]
     Active Substance: CEFTRIAXONE
     Indication: Sepsis
     Dosage: 1 G GRAM  X1ED INTRAVENOUS?
     Route: 040
  2. CEFTRIAXONE [Suspect]
     Active Substance: CEFTRIAXONE
     Indication: Cellulitis
  3. NORMAL SALINE FLUSH 10ML [Concomitant]
     Dates: start: 20230625
  4. SODIUM CHLORIDE 500ML BOLUS [Concomitant]
     Dates: start: 20230625

REACTIONS (7)
  - Burning sensation [None]
  - Retching [None]
  - Unresponsive to stimuli [None]
  - Skin burning sensation [None]
  - Cardio-respiratory arrest [None]
  - Decorticate posture [None]
  - Infusion related reaction [None]

NARRATIVE: CASE EVENT DATE: 20230625
